FAERS Safety Report 24118153 (Version 2)
Quarter: 2024Q3

REPORT INFORMATION
  Report Type: Spontaneous
  Country: JP (occurrence: JP)
  Receive Date: 20240722
  Receipt Date: 20240803
  Transmission Date: 20241016
  Serious: Yes (Hospitalization, Other)
  Sender: AMNEAL
  Company Number: JP-AMNEAL PHARMACEUTICALS-2024-AMRX-02654

PATIENT

DRUGS (1)
  1. ONGENTYS [Suspect]
     Active Substance: OPICAPONE
     Indication: Parkinson^s disease
     Dosage: UNK
     Route: 048
     Dates: end: 2024

REACTIONS (1)
  - Pneumonia aspiration [Recovered/Resolved]

NARRATIVE: CASE EVENT DATE: 20240601
